FAERS Safety Report 22363404 (Version 1)
Quarter: 2023Q2

REPORT INFORMATION
  Report Type: Spontaneous
  Country: ES (occurrence: ES)
  Receive Date: 20230525
  Receipt Date: 20230525
  Transmission Date: 20230722
  Serious: Yes (Life-Threatening, Hospitalization, Other)
  Sender: FDA-Public Use
  Company Number: None

PATIENT

DRUGS (3)
  1. DICLOFENAC [Suspect]
     Active Substance: DICLOFENAC
     Indication: Lower urinary tract symptoms
     Dosage: 50 MG, TID (50 MG 1-1-1)
     Route: 048
     Dates: start: 20230417, end: 20230512
  2. MIRABEGRON [Concomitant]
     Active Substance: MIRABEGRON
     Indication: Lower urinary tract symptoms
     Dosage: 50 MG, QD (0-0-1)
     Route: 048
     Dates: start: 20230508
  3. METAMIZOLE [Concomitant]
     Active Substance: METAMIZOLE
     Indication: Lower urinary tract symptoms
     Dosage: 575 MG, TID (575 MG 1-1-1)
     Route: 048
     Dates: start: 20230424, end: 20230512

REACTIONS (1)
  - Duodenal ulcer haemorrhage [Recovered/Resolved]

NARRATIVE: CASE EVENT DATE: 20230509
